FAERS Safety Report 13652517 (Version 1)
Quarter: 2017Q2

REPORT INFORMATION
  Report Type: Spontaneous
  Country: JP (occurrence: JP)
  Receive Date: 20170614
  Receipt Date: 20170614
  Transmission Date: 20170830
  Serious: Yes (Other)
  Sender: FDA-Public Use
  Company Number: JP-JNJFOC-20170518581

PATIENT
  Age: 37 Year
  Sex: Female
  Weight: 78 kg

DRUGS (7)
  1. FLORID [Suspect]
     Active Substance: MICONAZOLE
     Route: 067
  2. DEPAS [Concomitant]
     Active Substance: ETIZOLAM
     Indication: ANXIETY
     Route: 048
     Dates: start: 2001
  3. FLORID [Suspect]
     Active Substance: MICONAZOLE
     Indication: VULVOVAGINAL CANDIDIASIS
     Route: 067
     Dates: start: 20170427, end: 20170427
  4. MAGMITT [Concomitant]
     Active Substance: MAGNESIUM OXIDE
     Indication: CONSTIPATION
     Route: 048
     Dates: start: 2015
  5. STRATTERA [Concomitant]
     Active Substance: ATOMOXETINE HYDROCHLORIDE
     Indication: INTELLECTUAL DISABILITY
     Route: 048
     Dates: start: 2013
  6. TRAMCET [Suspect]
     Active Substance: ACETAMINOPHEN\TRAMADOL
     Indication: INTELLECTUAL DISABILITY
     Route: 048
     Dates: start: 2013
  7. DEPAS [Concomitant]
     Active Substance: ETIZOLAM
     Indication: TENSION
     Route: 048
     Dates: start: 2001

REACTIONS (4)
  - Pain [Recovered/Resolved]
  - Off label use [Unknown]
  - Product use in unapproved indication [Unknown]
  - Generalised oedema [Recovered/Resolved]

NARRATIVE: CASE EVENT DATE: 20170427
